FAERS Safety Report 14322779 (Version 1)
Quarter: 2017Q4

REPORT INFORMATION
  Report Type: Report from Study
  Country: CA (occurrence: CA)
  Receive Date: 20171225
  Receipt Date: 20171225
  Transmission Date: 20180321
  Serious: Yes (Other)
  Sender: FDA-Public Use
  Company Number: CA-AMGEN-CANSL2017189379

PATIENT
  Age: 75 Year
  Sex: Female

DRUGS (1)
  1. PROLIA [Suspect]
     Active Substance: DENOSUMAB
     Indication: PRODUCT USED FOR UNKNOWN INDICATION
     Dosage: 60 MG/ML, UNK
     Route: 065
     Dates: start: 20131125

REACTIONS (4)
  - Pancreatic operation [Unknown]
  - Pancreatic carcinoma [Unknown]
  - Splenectomy [Unknown]
  - Gallbladder operation [Unknown]

NARRATIVE: CASE EVENT DATE: 201711
